FAERS Safety Report 14178496 (Version 1)
Quarter: 2017Q4

REPORT INFORMATION
  Report Type: Spontaneous
  Country: NL (occurrence: NL)
  Receive Date: 20171110
  Receipt Date: 20171110
  Transmission Date: 20180321
  Serious: Yes (Other)
  Sender: FDA-Public Use
  Company Number: NL-PFIZER INC-2017402566

PATIENT
  Age: 30 Year
  Sex: Male
  Weight: 108 kg

DRUGS (6)
  1. TESTOSTERONE. [Concomitant]
     Active Substance: TESTOSTERONE
     Dosage: 50 MG, 1X/DAY
     Dates: start: 20170120
  2. SOMAVERT [Suspect]
     Active Substance: PEGVISOMANT
     Dosage: 60 MG, 2X/WEEK
     Route: 059
     Dates: start: 20170508
  3. LANREOTIDE [Concomitant]
     Active Substance: LANREOTIDE
     Dosage: 120 MG, 1X/4 WEEKS
     Dates: start: 20170120
  4. LANREOTIDE [Concomitant]
     Active Substance: LANREOTIDE
     Indication: ACROMEGALY
     Dosage: 120 MG, 1X/4 WEEKS
     Dates: start: 20151209, end: 20161012
  5. SOMAVERT [Suspect]
     Active Substance: PEGVISOMANT
     Indication: ACROMEGALY
     Dosage: 60 MG, 2X/WEEK
     Route: 059
     Dates: start: 20160526, end: 20161113
  6. TESTOSTERONE. [Concomitant]
     Active Substance: TESTOSTERONE
     Indication: ACROMEGALY
     Dosage: 50 MG, 1X/DAY
     Dates: start: 20150917, end: 20160824

REACTIONS (4)
  - Depressed mood [Not Recovered/Not Resolved]
  - Weight increased [Not Recovered/Not Resolved]
  - Fatigue [Not Recovered/Not Resolved]
  - Lymph node abscess [Not Recovered/Not Resolved]

NARRATIVE: CASE EVENT DATE: 20160611
